FAERS Safety Report 8003909-5 (Version None)
Quarter: 2011Q4

REPORT INFORMATION
  Report Type: 
  Country: None (occurrence: None)
  Receive Date: 20111222
  Receipt Date: 20111213
  Transmission Date: 20120403
  Serious: Yes (Hospitalization, Other)
  Sender: FDA-Public Use
  Company Number: US-ASTRAZENECA-2010SE21168

PATIENT
  Age: 63 Year
  Sex: Female

DRUGS (1)
  1. ARIMIDEX [Suspect]
     Route: 048

REACTIONS (7)
  - DEPRESSION [None]
  - WRIST FRACTURE [None]
  - MOOD ALTERED [None]
  - HIP FRACTURE [None]
  - PREMENSTRUAL SYNDROME [None]
  - DRUG DOSE OMISSION [None]
  - FALL [None]
